FAERS Safety Report 10681821 (Version 1)
Quarter: 2014Q4

REPORT INFORMATION
  Report Type: Spontaneous
  Country: GB (occurrence: GB)
  Receive Date: 20141230
  Receipt Date: 20141230
  Transmission Date: 20150529
  Serious: Yes (Other)
  Sender: FDA-Public Use
  Company Number: GB-BAYER-2014-190674

PATIENT
  Age: 35 Year
  Sex: Female

DRUGS (3)
  1. MIRENA [Suspect]
     Active Substance: LEVONORGESTREL
     Indication: ENDOMETRITIS
     Dosage: 20 MCG/24HR, CONT
     Route: 015
  2. LAXIDO [Concomitant]
     Active Substance: POLYETHYLENE GLYCOL 3350\POTASSIUM CHLORIDE\SODIUM BICARBONATE\SODIUM CHLORIDE
  3. MIRENA [Suspect]
     Active Substance: LEVONORGESTREL
     Indication: ENDOMETRITIS
     Dosage: 20 MCG/24HR, CONT
     Route: 015

REACTIONS (3)
  - Alopecia [Not Recovered/Not Resolved]
  - Increased appetite [Unknown]
  - Weight increased [Recovering/Resolving]
